FAERS Safety Report 9460667 (Version 1)
Quarter: 2013Q3

REPORT INFORMATION
  Report Type: Spontaneous
  Country: US (occurrence: US)
  Receive Date: 20130815
  Receipt Date: 20130815
  Transmission Date: 20140515
  Serious: No
  Sender: FDA-Public Use
  Company Number: US-UPSHER-SMITH LABORATORIES, INC.-13001967

PATIENT
  Sex: Female

DRUGS (5)
  1. CHLORPROMAZINE HYDROCHLORIDE [Suspect]
     Indication: NERVOUSNESS
     Dosage: 100 MG, BID
     Route: 048
     Dates: start: 1965
  2. NAPROSYN                           /00256201/ [Concomitant]
     Indication: ARTHRITIS
     Dosage: UNK
  3. PREDNISONE [Concomitant]
     Indication: ARTHRITIS
     Dosage: UNK
  4. AMARYL [Concomitant]
     Indication: DIABETES MELLITUS
     Dosage: UNK
  5. CLONIDINE [Concomitant]
     Indication: HYPERTENSION
     Dosage: UNK

REACTIONS (3)
  - Drug ineffective [Not Recovered/Not Resolved]
  - Insomnia [Not Recovered/Not Resolved]
  - Somnolence [Not Recovered/Not Resolved]
